FAERS Safety Report 21833765 (Version 1)
Quarter: 2023Q1

REPORT INFORMATION
  Report Type: Spontaneous
  Country: US (occurrence: US)
  Receive Date: 20230107
  Receipt Date: 20230107
  Transmission Date: 20230417
  Serious: No
  Sender: FDA-Public Use
  Company Number: US-NEUROCRINE BIOSCIENCES INC.-2022NBI09234

PATIENT

DRUGS (3)
  1. INGREZZA [Suspect]
     Active Substance: VALBENAZINE
     Indication: Tardive dyskinesia
     Dosage: 40 MILLIGRAM
     Route: 065
  2. VRAYLAR [Concomitant]
     Active Substance: CARIPRAZINE
  3. CAPLYTA [Concomitant]
     Active Substance: LUMATEPERONE

REACTIONS (1)
  - Tardive dyskinesia [Unknown]
